FAERS Safety Report 7328653-9 (Version None)
Quarter: 2011Q1

REPORT INFORMATION
  Report Type: 
  Country: None (occurrence: None)
  Receive Date: 20110303
  Receipt Date: 20110211
  Transmission Date: 20110831
  Serious: Yes (Other)
  Sender: FDA-Public Use
  Company Number: PHHY2011US12204

PATIENT
  Sex: Female

DRUGS (9)
  1. REBIF [Suspect]
     Dosage: 44 MG, UNK
     Route: 058
     Dates: end: 20100427
  2. PROTONIX [Concomitant]
  3. ZOCOR [Concomitant]
  4. ELAVIL [Concomitant]
     Dosage: 10 MG, QD AT NIGHT
     Route: 048
  5. PROVIGIL [Concomitant]
  6. KLONOPIN [Concomitant]
     Dosage: 2 MG ONE AND HALF AT NIGHT
     Route: 048
  7. TOPAMAX [Concomitant]
     Indication: CONVULSION
     Dosage: 200 MG, TWO TWICE DAILY
     Route: 048
     Dates: start: 20040101
  8. RITALIN [Suspect]
     Dosage: UNK
  9. REBIF [Suspect]
     Dosage: 22 MG, TIW
     Route: 058
     Dates: start: 20091016

REACTIONS (11)
  - MOVEMENT DISORDER [None]
  - HEPATOMEGALY [None]
  - WEIGHT INCREASED [None]
  - LIVER FUNCTION TEST ABNORMAL [None]
  - ASPARTATE AMINOTRANSFERASE INCREASED [None]
  - ABDOMINAL PAIN [None]
  - CONVULSION [None]
  - OEDEMA PERIPHERAL [None]
  - INJURY [None]
  - FALL [None]
  - ALANINE AMINOTRANSFERASE INCREASED [None]
